FAERS Safety Report 6075051-4 (Version None)
Quarter: 2009Q1

REPORT INFORMATION
  Report Type: 
  Country: None (occurrence: None)
  Receive Date: 20090212
  Receipt Date: 20090205
  Transmission Date: 20090719
  Serious: Yes (Other)
  Sender: FDA-Public Use
  Company Number: AU-ALLERGAN-0901606US

PATIENT
  Sex: Female

DRUGS (1)
  1. BOTOX [Suspect]
     Indication: DRUG USE FOR UNKNOWN INDICATION

REACTIONS (7)
  - ANXIETY [None]
  - DIARRHOEA [None]
  - FATIGUE [None]
  - HALLUCINATION [None]
  - INJECTION SITE REACTION [None]
  - NAUSEA [None]
  - TACHYCARDIA [None]
